FAERS Safety Report 15722833 (Version 7)
Quarter: 2019Q2

REPORT INFORMATION
  Report Type: Report from Study
  Country: CN (occurrence: CN)
  Receive Date: 20181214
  Receipt Date: 20190401
  Transmission Date: 20190711
  Serious: Yes (Death, Hospitalization)
  Sender: FDA-Public Use
  Company Number: CN-PFIZER INC-2018507330

PATIENT
  Age: 79 Year
  Sex: Female
  Weight: 55 kg

DRUGS (10)
  1. THYMOPENTIN [Concomitant]
     Active Substance: THYMOPENTIN
     Indication: IMMUNODEFICIENCY
     Dosage: 10 MG, 2X/WEEK
     Route: 030
     Dates: start: 20160620
  2. CRIZOTINIB [Suspect]
     Active Substance: CRIZOTINIB
     Indication: NON-SMALL CELL LUNG CANCER
     Dosage: UNK, CYCLIC
     Dates: start: 20141231, end: 20171101
  3. THYMOSIN ALPHA 1 [Concomitant]
     Dosage: 1.6 MG, 2X/WEEK
     Route: 058
     Dates: start: 20130901
  4. CALTRATE D [CALCIUM CARBONATE;COLECALCIFEROL] [Concomitant]
     Indication: PROPHYLAXIS
     Dosage: 1 TABLET, 1X/DAY
     Route: 048
     Dates: start: 20170906
  5. CRIZOTINIB [Suspect]
     Active Substance: CRIZOTINIB
     Dosage: UNK UNK, CYCLIC
     Dates: start: 20171130, end: 20181204
  6. MACROGOL 4000 [Concomitant]
     Active Substance: POLYETHYLENE GLYCOL 4000
     Indication: CONSTIPATION
     Dosage: 1 BAG, 2X/DAY
     Route: 048
     Dates: start: 20170906
  7. ZOLEDRONATE [Concomitant]
     Active Substance: ZOLEDRONIC ACID
     Dosage: 4 MG, 1X/DAY (QM)
     Route: 058
     Dates: start: 20130301
  8. JIN SHUI BAO [Concomitant]
     Indication: BLOOD CREATININE INCREASED
     Dosage: 3 CAPSULES, TID
     Route: 048
     Dates: start: 20180419
  9. VITAMIN D3 [Concomitant]
     Active Substance: CHOLECALCIFEROL
     Indication: MINERAL SUPPLEMENTATION
     Dosage: 1 TABLET, 1X/DAY
     Route: 048
     Dates: start: 20180803
  10. VITAMIN B6 [Concomitant]
     Active Substance: PYRIDOXINE HYDROCHLORIDE
     Indication: NAUSEA
     Dosage: 1 TABLET, 2X/DAY
     Route: 048
     Dates: start: 20180419

REACTIONS (1)
  - Chronic kidney disease [Unknown]

NARRATIVE: CASE EVENT DATE: 20181206
